FAERS Safety Report 6541753-6 (Version None)
Quarter: 2010Q1

REPORT INFORMATION
  Report Type: 
  Country: None (occurrence: None)
  Receive Date: 20100119
  Receipt Date: 20100114
  Transmission Date: 20100710
  Serious: Yes (Other)
  Sender: FDA-Public Use
  Company Number: CHPA2010US01113

PATIENT
  Age: 48 Year
  Sex: Female
  Weight: 122.45 kg

DRUGS (3)
  1. THERAFLU VAPOR PATCH (NCH) [Suspect]
     Indication: INFLUENZA
     Dosage: UNK, UNK
  2. THERAFLU VAPOR PATCH (NCH) [Suspect]
     Indication: COUGH
  3. THERAFLU VAPOR PATCH (NCH) [Suspect]
     Indication: NASOPHARYNGITIS

REACTIONS (2)
  - HYPERTHYROIDISM [None]
  - WRONG TECHNIQUE IN DRUG USAGE PROCESS [None]
